FAERS Safety Report 8030626-8 (Version None)
Quarter: 2012Q1

REPORT INFORMATION
  Report Type: 
  Country: None (occurrence: None)
  Receive Date: 20120109
  Receipt Date: 20120105
  Transmission Date: 20120608
  Serious: Yes (Life-Threatening)
  Sender: FDA-Public Use
  Company Number: FR-ROCHE-1028069

PATIENT
  Sex: Male
  Weight: 78 kg

DRUGS (7)
  1. CANCIDAS [Suspect]
     Indication: SYSTEMIC CANDIDA
     Route: 042
     Dates: start: 20111209, end: 20111218
  2. MYCOPHENOLATE MOFETIL (CELLCEPT) [Suspect]
     Indication: TRANSPLANT REJECTION
     Route: 048
     Dates: start: 20000101, end: 20111217
  3. MYCOPHENOLATE MOFETIL (CELLCEPT) [Suspect]
     Dosage: HALF DOSE
     Dates: start: 20111220
  4. FLUCONAZOLE [Concomitant]
     Indication: CANDIDIASIS
     Route: 042
     Dates: start: 20111111
  5. VALGANCICLOVIR [Concomitant]
     Indication: ANTIVIRAL PROPHYLAXIS
     Dosage: 450MG EVERY TWO DAYS
     Route: 048
     Dates: start: 20111104
  6. MYCOPHENOLATE MOFETIL (CELLCEPT) [Suspect]
     Dates: start: 20111222
  7. BACTRIM [Concomitant]
     Indication: PROPHYLAXIS
     Dosage: 400MG EVERY TWO DAYS
     Dates: start: 20111204

REACTIONS (1)
  - AGRANULOCYTOSIS [None]
